FAERS Safety Report 19014676 (Version 1)
Quarter: 2021Q1

REPORT INFORMATION
  Report Type: Spontaneous
  Country: US (occurrence: US)
  Receive Date: 20210316
  Receipt Date: 20210316
  Transmission Date: 20210420
  Serious: No
  Sender: FDA-Public Use
  Company Number: US-PIERREL PHARMA S.P.A.-2020PIR00034

PATIENT
  Age: 9 Year
  Sex: Female
  Weight: 29.48 kg

DRUGS (2)
  1. ORABLOC [Suspect]
     Active Substance: ARTICAINE HYDROCHLORIDE\EPINEPHRINE BITARTRATE
     Indication: ANAESTHESIA
     Dosage: 2.5 CARPALS (APPROX 4.5 CC) FOR 1 APPOINTMENT
     Dates: start: 20201029, end: 20201029
  2. ORABLOC [Suspect]
     Active Substance: ARTICAINE HYDROCHLORIDE\EPINEPHRINE BITARTRATE
     Indication: TOOTH EXTRACTION

REACTIONS (6)
  - Fear [Unknown]
  - Product quality issue [Recovered/Resolved]
  - Product storage error [Recovered/Resolved]
  - Drug ineffective [Recovered/Resolved]
  - Injury [Unknown]
  - Anxiety [Unknown]

NARRATIVE: CASE EVENT DATE: 202010
